FAERS Safety Report 7963868-8 (Version None)
Quarter: 2011Q4

REPORT INFORMATION
  Report Type: 
  Country: None (occurrence: None)
  Receive Date: 20111208
  Receipt Date: 20111128
  Transmission Date: 20120403
  Serious: Yes (Hospitalization)
  Sender: FDA-Public Use
  Company Number: US-BAYER-2011-032287

PATIENT
  Age: 46 Year
  Sex: Female
  Weight: 54.422 kg

DRUGS (20)
  1. LEUCOVORIN CALCIUM [Concomitant]
     Indication: RHEUMATOID ARTHRITIS
     Dosage: UNK
     Dates: start: 20010101
  2. EFFEXOR XR [Concomitant]
     Indication: DEPRESSION
  3. RELAFEN [Concomitant]
     Dosage: 750 MG, UNK
     Route: 048
     Dates: start: 20090401
  4. CIPROFLOXACIN [Concomitant]
     Dosage: 500 MG, UNK
     Dates: start: 20090212
  5. METRONIDAZOLE [Concomitant]
     Dosage: UNK
     Dates: start: 20090212
  6. YAZ [Suspect]
     Indication: PREMENSTRUAL SYNDROME
     Dosage: UNK
     Route: 048
     Dates: start: 20060601, end: 20090401
  7. FOLIC ACID [Concomitant]
     Indication: UNEVALUABLE EVENT
     Dosage: 0.4 MG, QD
     Route: 048
     Dates: start: 20050501
  8. INDOMETHACIN [Concomitant]
     Dosage: 75 MG, UNK
     Route: 048
     Dates: start: 20050510
  9. DILAUDID [Concomitant]
     Route: 042
  10. YASMIN [Suspect]
     Indication: PREMENSTRUAL SYNDROME
     Dosage: UNK
     Route: 048
     Dates: start: 20050401, end: 20060601
  11. REMICADE [Concomitant]
     Indication: RHEUMATOID ARTHRITIS
     Dosage: UNK
     Dates: start: 20010101
  12. CELEBREX [Concomitant]
     Indication: RHEUMATOID ARTHRITIS
     Dosage: UNK
     Dates: start: 20010101
  13. EFFEXOR XR [Concomitant]
     Indication: ANXIETY
     Dosage: 150 MG, QD
     Route: 048
     Dates: start: 20010101
  14. METHOTREXATE [Concomitant]
     Indication: RHEUMATOID ARTHRITIS
     Dosage: UNK
     Dates: start: 20010101
  15. PROTONIX [Concomitant]
     Indication: ANALGESIC THERAPY
     Dosage: 40 MG, PRN
     Route: 048
     Dates: start: 20050501
  16. METHOTREXATE [Concomitant]
     Indication: RHEUMATOID ARTHRITIS
     Dosage: 2.5 MG, OW
     Dates: start: 20090401
  17. MORPHINE [Concomitant]
     Route: 042
  18. RELAFEN [Concomitant]
     Indication: RHEUMATOID ARTHRITIS
     Dosage: 750 MG, UNK
     Route: 048
     Dates: start: 20050501
  19. ZANAFLEX [Concomitant]
     Indication: RHEUMATOID ARTHRITIS
     Dosage: 4 MG, QD
     Route: 048
     Dates: start: 20050501
  20. KLONOPIN [Concomitant]
     Indication: ANXIETY
     Dosage: 0.5 MG, PRN
     Route: 048
     Dates: start: 20090401

REACTIONS (13)
  - LUNG INFILTRATION [None]
  - PULMONARY EMBOLISM [None]
  - NAUSEA [None]
  - PLEURAL EFFUSION [None]
  - GALLBLADDER DISORDER [None]
  - CHOLECYSTITIS CHRONIC [None]
  - CHOLELITHIASIS [None]
  - ABDOMINAL DISTENSION [None]
  - ABDOMINAL PAIN [None]
  - PAIN [None]
  - INJURY [None]
  - CHEST PAIN [None]
  - DYSPNOEA [None]
